FAERS Safety Report 5735817-4 (Version None)
Quarter: 2008Q2

REPORT INFORMATION
  Report Type: 
  Country: None (occurrence: None)
  Receive Date: 20080508
  Receipt Date: 20080508
  Transmission Date: 20081010
  Serious: Yes (Other)
  Sender: FDA-Public Use
  Company Number: None

PATIENT
  Age: 73 Year
  Sex: Male
  Weight: 113.3993 kg

DRUGS (1)
  1. CREST PRO-HEALTH PURCH DEC 2007 7191517821 EXP 06/09 [Suspect]
     Indication: DENTAL DISORDER PROPHYLAXIS
     Dosage: MOUTHFULL EVERY NIGHT DENTAL
     Route: 004
     Dates: start: 20071101, end: 20080108

REACTIONS (1)
  - TONGUE BLACK HAIRY [None]
